FAERS Safety Report 10134121 (Version 1)
Quarter: 2014Q2

REPORT INFORMATION
  Report Type: Spontaneous
  Country: US (occurrence: US)
  Receive Date: 20140428
  Receipt Date: 20140428
  Transmission Date: 20141212
  Serious: No
  Sender: FDA-Public Use
  Company Number: US-SANOFI-AVENTIS-2013SA072123

PATIENT
  Age: 20 Year
  Sex: Male

DRUGS (1)
  1. ALLEGRA 24 HOUR [Suspect]
     Indication: PRURITUS
     Route: 065

REACTIONS (13)
  - Abdominal discomfort [Unknown]
  - Abdominal pain upper [Unknown]
  - Back pain [Unknown]
  - Dry throat [Unknown]
  - Oropharyngeal pain [Unknown]
  - Oesophageal disorder [Unknown]
  - Oesophageal pain [Unknown]
  - Dysuria [Unknown]
  - Urinary tract pain [Unknown]
  - Feeling abnormal [Unknown]
  - Sleep disorder [Unknown]
  - Dyspnoea [Unknown]
  - Therapeutic response decreased [Unknown]
